FAERS Safety Report 8504231-0 (Version None)
Quarter: 2012Q3

REPORT INFORMATION
  Report Type: 
  Country: None (occurrence: None)
  Receive Date: 20120711
  Receipt Date: 20120703
  Transmission Date: 20120928
  Serious: No
  Sender: FDA-Public Use
  Company Number: US-ASTRAZENECA-2012SE45833

PATIENT
  Age: 54 Year
  Sex: Male

DRUGS (6)
  1. NORVASC [Concomitant]
  2. PROZAC [Concomitant]
  3. NEXIUM [Suspect]
     Route: 048
  4. LASIX [Concomitant]
  5. SYMBICORT [Suspect]
     Route: 055
  6. TOPROL-XL [Suspect]
     Route: 048

REACTIONS (3)
  - INTENTIONAL DRUG MISUSE [None]
  - DIZZINESS [None]
  - GAIT DISTURBANCE [None]
